FAERS Safety Report 4819158-5 (Version None)
Quarter: 2005Q4

REPORT INFORMATION
  Report Type: 
  Country: None (occurrence: None)
  Receive Date: 20051102
  Receipt Date: 20051102
  Transmission Date: 20060501
  Serious: Yes (Hospitalization)
  Sender: FDA-Public Use
  Company Number: None

PATIENT
  Age: 60 Year
  Sex: Male
  Weight: 101 kg

DRUGS (1)
  1. FIORINAL [Suspect]

REACTIONS (6)
  - ABDOMINAL INJURY [None]
  - ACCIDENTAL OVERDOSE [None]
  - CONFUSIONAL STATE [None]
  - FACE INJURY [None]
  - FALL [None]
  - SYNCOPE [None]
